FAERS Safety Report 9879979 (Version 4)
Quarter: 2016Q2

REPORT INFORMATION
  Report Type: Spontaneous
  Country: IT (occurrence: IT)
  Receive Date: 20140207
  Receipt Date: 20160512
  Transmission Date: 20160815
  Serious: Yes (Hospitalization, Other)
  Sender: FDA-Public Use
  Company Number: IT-MERCK-1402ITA000906

PATIENT
  Age: 72 Year
  Sex: Male

DRUGS (9)
  1. ACARBOSIO TECNIGEN (ACARBOSE) [Concomitant]
     Dosage: 100 MG, BID
     Route: 048
  2. LOFTYL [Concomitant]
     Dosage: 600 DOSE UNIT
  3. XELEVIA [Suspect]
     Active Substance: SITAGLIPTIN PHOSPHATE
     Dosage: 50 MG, DAILY
     Route: 048
     Dates: start: 20111212, end: 20140121
  4. XELEVIA [Suspect]
     Active Substance: SITAGLIPTIN PHOSPHATE
     Indication: TYPE 2 DIABETES MELLITUS
     Dosage: 100MG, QD
     Route: 048
  5. NOVO-NORM [Concomitant]
     Active Substance: REPAGLINIDE
     Dosage: 2 MG, BID
     Route: 048
  6. LANTUS [Concomitant]
     Active Substance: INSULIN GLARGINE
     Dosage: 8 DOSE UNITS
     Route: 058
  7. CARDIRENE [Concomitant]
     Active Substance: ASPIRIN DL-LYSINE
     Dosage: 160MG ONCE DAILY
     Route: 048
  8. OLPREZIDE [Concomitant]
     Active Substance: HYDROCHLOROTHIAZIDE\OLMESARTAN MEDOXOMIL
     Dosage: 20/12.5MG, ONCE DAILY,
  9. TORVAST [Concomitant]
     Active Substance: ATORVASTATIN
     Dosage: 10 MG, DAILY
     Dates: start: 2012

REACTIONS (2)
  - Cholecystitis infective [Recovered/Resolved with Sequelae]
  - Creatinine renal clearance decreased [Unknown]

NARRATIVE: CASE EVENT DATE: 20140108
